FAERS Safety Report 7962489-0 (Version None)
Quarter: 2011Q4

REPORT INFORMATION
  Report Type: 
  Country: None (occurrence: None)
  Receive Date: 20111207
  Receipt Date: 20110517
  Transmission Date: 20120403
  Serious: Yes (Hospitalization)
  Sender: FDA-Public Use
  Company Number: US-GLAXOSMITHKLINE-A0928741A

PATIENT
  Age: 76 Year
  Sex: Female

DRUGS (1)
  1. AVANDIA [Suspect]
     Indication: DIABETES MELLITUS
     Route: 048
     Dates: start: 20050101, end: 20050101

REACTIONS (5)
  - IMMOBILE [None]
  - CORONARY ARTERY BYPASS [None]
  - APHASIA [None]
  - CARDIAC OPERATION [None]
  - MYOCARDIAL INFARCTION [None]
